FAERS Safety Report 7810438-8 (Version None)
Quarter: 2011Q4

REPORT INFORMATION
  Report Type: 
  Country: None (occurrence: None)
  Receive Date: 20111012
  Receipt Date: 20111006
  Transmission Date: 20120403
  Serious: Yes (Hospitalization, Disabling)
  Sender: FDA-Public Use
  Company Number: US-MERCK-1105USA01487

PATIENT
  Age: 58 Year
  Sex: Female

DRUGS (2)
  1. FOSAMAX [Suspect]
     Indication: OSTEOPOROSIS
     Route: 048
     Dates: start: 20000101, end: 20090101
  2. FOSAMAX [Suspect]
     Route: 048
     Dates: start: 20100101

REACTIONS (16)
  - RESTLESS LEGS SYNDROME [None]
  - EXOSTOSIS [None]
  - BLOOD CHOLESTEROL INCREASED [None]
  - FUNGAL INFECTION [None]
  - ANXIETY [None]
  - EXPOSED BONE IN JAW [None]
  - CARDIAC DISORDER [None]
  - HYPERTENSION [None]
  - TOOTH DISORDER [None]
  - GASTROOESOPHAGEAL REFLUX DISEASE [None]
  - OSTEONECROSIS OF JAW [None]
  - SINUS DISORDER [None]
  - DEPRESSION [None]
  - DIABETES MELLITUS [None]
  - IMPAIRED HEALING [None]
  - ORAL INFECTION [None]
